FAERS Safety Report 21598089 (Version 5)
Quarter: 2023Q2

REPORT INFORMATION
  Report Type: Report from Study
  Country: US (occurrence: US)
  Receive Date: 20221115
  Receipt Date: 20230418
  Transmission Date: 20230722
  Serious: No
  Sender: FDA-Public Use
  Company Number: US-AGIOS-2211US03174

PATIENT
  Age: 64 Year
  Sex: Male
  Weight: 69 kg

DRUGS (8)
  1. MITAPIVAT [Suspect]
     Active Substance: MITAPIVAT
     Indication: Pyruvate kinase deficiency anaemia
     Dosage: 50 MILLIGRAM, BID
     Route: 048
     Dates: start: 20220717
  2. MITAPIVAT [Suspect]
     Active Substance: MITAPIVAT
     Dosage: 50 MILLIGRAM, BID
     Route: 048
     Dates: start: 20230328
  3. MITAPIVAT [Suspect]
     Active Substance: MITAPIVAT
     Dosage: 20 MILLIGRAM, BID
     Route: 048
  4. DEFEROXAMINE [Concomitant]
     Active Substance: DEFEROXAMINE MESYLATE
     Indication: Anaemia
     Dosage: 10 MILLIGRAM, TID
     Route: 058
     Dates: start: 20220715
  5. EYLEA [Concomitant]
     Active Substance: AFLIBERCEPT
     Indication: Macular degeneration
     Dosage: 2 MILLIGRAM, MONTHLY
     Dates: start: 20220715
  6. FOLIC ACID [Concomitant]
     Active Substance: FOLIC ACID
     Indication: Anaemia
     Dosage: 800 MILLIGRAM, QD
     Route: 048
  7. VITAMIN B12 [Concomitant]
     Active Substance: CYANOCOBALAMIN
     Indication: Anaemia
     Dosage: 100 MILLIGRAM, QD
     Route: 048
  8. VITAMIN B6 [Concomitant]
     Active Substance: PYRIDOXINE HYDROCHLORIDE
     Indication: Anaemia
     Dosage: 50 MILLIGRAM, QD
     Route: 048
     Dates: start: 20220715

REACTIONS (13)
  - Chromaturia [Unknown]
  - Urine odour abnormal [Unknown]
  - Haemoglobin decreased [Unknown]
  - Cough [Unknown]
  - Pyrexia [Unknown]
  - Diarrhoea [Unknown]
  - Flatulence [Unknown]
  - Therapy non-responder [Unknown]
  - Depression [Unknown]
  - Abdominal pain [Recovered/Resolved]
  - Pelvic pain [Recovered/Resolved]
  - Chromaturia [Recovered/Resolved]
  - Urine abnormality [Not Recovered/Not Resolved]

NARRATIVE: CASE EVENT DATE: 20221107
